FAERS Safety Report 10063442 (Version 1)
Quarter: 2014Q2

REPORT INFORMATION
  Report Type: Spontaneous
  Country: GB (occurrence: GB)
  Receive Date: 20140407
  Receipt Date: 20140407
  Transmission Date: 20141212
  Serious: Yes (Other)
  Sender: FDA-Public Use
  Company Number: GB-MYLANLABS-2014S1006909

PATIENT
  Age: 32 Year
  Sex: Female

DRUGS (7)
  1. ALENDRONIC ACID [Suspect]
     Dosage: WEEKLY
  2. FEXOFENADINE [Suspect]
     Indication: ASTHMA
     Dosage: 180 MG, DAILY
     Route: 048
  3. MONTELUKAST SODIUM [Suspect]
     Dosage: 10 MG, QD
  4. SPIRIVA [Suspect]
     Indication: ASTHMA
     Dosage: UNK
  5. SYMBICORT [Suspect]
     Indication: ASTHMA
     Dosage: BID
  6. THEOPHYLLINE [Suspect]
     Indication: ASTHMA
     Dosage: 500 MG DAILY
     Route: 048
  7. XOLAIR [Suspect]
     Indication: ASTHMA
     Dosage: 600 MG
     Route: 058

REACTIONS (3)
  - Haemorrhage [Recovered/Resolved]
  - Maternal exposure during pregnancy [Unknown]
  - Skin infection [Recovering/Resolving]
